FAERS Safety Report 5772349-1 (Version None)
Quarter: 2008Q2

REPORT INFORMATION
  Report Type: 
  Country: None (occurrence: None)
  Receive Date: 20080613
  Receipt Date: 20080606
  Transmission Date: 20081010
  Serious: Yes (Disabling)
  Sender: FDA-Public Use
  Company Number: GB-ROCHE-569001

PATIENT
  Age: 36 Year
  Sex: Male

DRUGS (2)
  1. ISOTRETINOIN [Suspect]
     Indication: ACNE
     Route: 048
     Dates: start: 20071001
  2. ISOTRETINOIN [Suspect]
     Route: 048
     Dates: start: 20020101

REACTIONS (1)
  - DELUSIONAL DISORDER, PERSECUTORY TYPE [None]
